FAERS Safety Report 4665173-4 (Version None)
Quarter: 2005Q2

REPORT INFORMATION
  Report Type: 
  Country: None (occurrence: None)
  Receive Date: 20050517
  Receipt Date: 20050510
  Transmission Date: 20051028
  Serious: Yes (Other)
  Sender: FDA-Public Use
  Company Number: 2005BI007181

PATIENT
  Age: 36 Year
  Sex: Female
  Weight: 63 kg

DRUGS (2)
  1. AVONEX [Suspect]
     Indication: MULTIPLE SCLEROSIS
     Dosage: 30 UG; QW; IM
     Route: 030
     Dates: start: 20040901, end: 20050301
  2. CIPRAMIL [Concomitant]

REACTIONS (11)
  - AGGRESSION [None]
  - ANXIETY [None]
  - ASTHENIA [None]
  - AUTOIMMUNE THYROIDITIS [None]
  - LUNG NEOPLASM [None]
  - MASTICATION DISORDER [None]
  - MEDIASTINAL MASS [None]
  - MOTOR DYSFUNCTION [None]
  - MYASTHENIA GRAVIS [None]
  - SENSATION OF HEAVINESS [None]
  - SPEECH DISORDER [None]
